FAERS Safety Report 22357677 (Version 1)
Quarter: 2023Q2

REPORT INFORMATION
  Report Type: Other
  Country: None (occurrence: US)
  Receive Date: 20230524
  Receipt Date: 20230524
  Transmission Date: 20230722
  Serious: Yes (Other)
  Sender: FDA-Public Use
  Company Number: US-Appco Pharma LLC-2141935

PATIENT
  Age: 20 Year
  Sex: Female

DRUGS (9)
  1. DOXYCYCLINE [Suspect]
     Active Substance: DOXYCYCLINE
     Indication: Pyrexia
     Route: 065
  2. CEFTRIAXONE [Suspect]
     Active Substance: CEFTRIAXONE
     Route: 065
  3. METRONIDAZOLE [Suspect]
     Active Substance: METRONIDAZOLE
     Route: 065
  4. GENTAMICIN [Suspect]
     Active Substance: GENTAMICIN
     Route: 065
  5. IMIPENEM [Suspect]
     Active Substance: IMIPENEM
     Route: 065
  6. VANCOMYCIN HYDROCHLORIDE [Suspect]
     Active Substance: VANCOMYCIN HYDROCHLORIDE
     Route: 065
  7. LINEZOLID [Suspect]
     Active Substance: LINEZOLID
     Route: 065
  8. AMPICILLIN AND SULBACTAM [Suspect]
     Active Substance: AMPICILLIN SODIUM\SULBACTAM SODIUM
     Route: 065
  9. MEROPENEM [Suspect]
     Active Substance: MEROPENEM
     Route: 065

REACTIONS (1)
  - Drug ineffective [Unknown]
